FAERS Safety Report 15946953 (Version 2)
Quarter: 2019Q1

REPORT INFORMATION
  Report Type: Report from Study
  Country: ZA (occurrence: ZA)
  Receive Date: 20190212
  Receipt Date: 20190306
  Transmission Date: 20190417
  Serious: Yes (Life-Threatening)
  Sender: FDA-Public Use
  Company Number: ZA-SA-2019SA036510

PATIENT
  Age: 67 Year
  Sex: Female

DRUGS (8)
  1. STORWIN [Concomitant]
     Active Substance: ROSUVASTATIN CALCIUM
     Dosage: 10 MG
     Dates: start: 20190115
  2. GLUCOPHAGE [Concomitant]
     Active Substance: METFORMIN HYDROCHLORIDE
     Dosage: AFTER SUPPER- 1000 MG AND AFTER NREAKFAST- 1000 MG, BID
     Dates: start: 20190115
  3. ZYTOMIL [Concomitant]
     Active Substance: ESCITALOPRAM OXALATE
     Dosage: BEFORE BREAKFAST- 10 MG, QD
     Dates: start: 20190115
  4. OPTISULIN (INSULIN GLARGINE) [Suspect]
     Active Substance: INSULIN GLARGINE
     Dosage: 14 U, HS
     Dates: start: 20190115
  5. NO STUDY DRUG GIVEN [Suspect]
     Active Substance: UNSPECIFIED INGREDIENT
  6. ADCO-RETIC [Concomitant]
     Active Substance: AMILORIDE HYDROCHLORIDE\HYDROCHLOROTHIAZIDE
     Dosage: BEOFRE BREAKFAST- 5 MG, QD
     Dates: start: 20190115
  7. SINOPREN [Concomitant]
     Active Substance: LISINOPRIL
     Dosage: BEFORE BREAKFAST- 10 MG, QD
     Dates: start: 20190115
  8. DIAGLUCIDE [Concomitant]
     Active Substance: GLICLAZIDE
     Dosage: BEFORE BREEAFAST- 60 MG, QD
     Dates: start: 20190115

REACTIONS (7)
  - Hyperhidrosis [Recovered/Resolved]
  - Dizziness [Recovered/Resolved]
  - Asthenia [Recovered/Resolved]
  - Blood glucose decreased [Recovered/Resolved]
  - Cough [Recovered/Resolved]
  - Chills [Recovered/Resolved]
  - Influenza [Recovered/Resolved]

NARRATIVE: CASE EVENT DATE: 20190202
